FAERS Safety Report 17361919 (Version 1)
Quarter: 2020Q1

REPORT INFORMATION
  Report Type: Spontaneous
  Country: US (occurrence: US)
  Receive Date: 20200131
  Receipt Date: 20200131
  Transmission Date: 20200409
  Serious: Yes (Other)
  Sender: FDA-Public Use
  Company Number: None

PATIENT
  Age: 68 Year
  Sex: Male
  Weight: 108 kg

DRUGS (1)
  1. VENLAFAXINE XR 75MG [Suspect]
     Active Substance: VENLAFAXINE HYDROCHLORIDE
     Indication: ANXIETY
     Dosage: ?          QUANTITY:1 CAPSULE(S);?
     Route: 048
     Dates: start: 20191201, end: 20200128

REACTIONS (5)
  - Head discomfort [None]
  - Product substitution issue [None]
  - Exophthalmos [None]
  - Visual impairment [None]
  - Vitreous floaters [None]

NARRATIVE: CASE EVENT DATE: 20191201
